FAERS Safety Report 11145370 (Version 1)
Quarter: 2015Q2

REPORT INFORMATION
  Report Type: Spontaneous
  Country: US (occurrence: US)
  Receive Date: 20150526
  Receipt Date: 20150526
  Transmission Date: 20150821
  Serious: Yes (Other)
  Sender: FDA-Public Use
  Company Number: US-DSJP-DSU-2015-115749

PATIENT

DRUGS (1)
  1. WELCHOL [Suspect]
     Active Substance: COLESEVELAM HYDROCHLORIDE
     Indication: BLOOD CHOLESTEROL INCREASED
     Dosage: 625 MG, UNK
     Route: 048

REACTIONS (5)
  - Pharyngeal oedema [None]
  - Swollen tongue [Unknown]
  - Hypersensitivity [Unknown]
  - Constipation [Unknown]
  - Headache [Unknown]
